FAERS Safety Report 6610193-3 (Version None)
Quarter: 2010Q1

REPORT INFORMATION
  Report Type: 
  Country: None (occurrence: None)
  Receive Date: 20100216
  Receipt Date: 20090430
  Transmission Date: 20100710
  Serious: Yes (Other)
  Sender: FDA-Public Use
  Company Number: MC200900169

PATIENT
  Age: 2 Year
  Sex: Female

DRUGS (1)
  1. ANGIOMAX [Suspect]
     Dosage: 0.1 MG/KG

REACTIONS (1)
  - DRUG INEFFECTIVE [None]
